FAERS Safety Report 23693727 (Version 1)
Quarter: 2024Q1

REPORT INFORMATION
  Report Type: Spontaneous
  Country: US (occurrence: None)
  Receive Date: 20240331
  Receipt Date: 20240331
  Transmission Date: 20240409
  Serious: Yes (Hospitalization)
  Sender: FDA-Public Use
  Company Number: None

PATIENT
  Age: 37 Year
  Sex: Female
  Weight: 108 kg

DRUGS (20)
  1. IMCIVREE [Suspect]
     Active Substance: SETMELANOTIDE
     Indication: Laurence-Moon-Bardet-Biedl syndrome
     Dosage: 1 10MG/ML SUBCUTANEOUS?
     Route: 058
     Dates: start: 20240327, end: 20240327
  2. ZOFRAN [Concomitant]
     Active Substance: ONDANSETRON HYDROCHLORIDE
  3. plaquenil [Concomitant]
  4. MELATONIN [Concomitant]
     Active Substance: MELATONIN
  5. bariatric multivitamin [Concomitant]
  6. IRON [Concomitant]
  7. b12 [Concomitant]
  8. VITAMIN D NOS [Concomitant]
     Active Substance: VITAMIN D NOS
  9. GABAPENTIN [Concomitant]
     Active Substance: GABAPENTIN
  10. quviviq [Concomitant]
  11. OMEPRAZOLE [Concomitant]
  12. LISINOPRIL [Concomitant]
  13. PROPRANOLOL [Concomitant]
  14. WELLBUTRIN [Concomitant]
  15. ACETAMINOPHEN [Concomitant]
  16. VENTOLIN HFA [Concomitant]
  17. EPIPEN [Concomitant]
     Active Substance: EPINEPHRINE
  18. VYVANSE [Concomitant]
  19. PHENTERMINE [Concomitant]
  20. ATIVAN [Concomitant]
     Active Substance: LORAZEPAM

REACTIONS (14)
  - Limb discomfort [None]
  - Nausea [None]
  - Muscle spasms [None]
  - Flank pain [None]
  - Diaphragmatic spasm [None]
  - Vomiting [None]
  - Blood bilirubin increased [None]
  - Blood ketone body present [None]
  - Urobilinogen urine increased [None]
  - Blood alkaline phosphatase increased [None]
  - Aspartate aminotransferase increased [None]
  - Alanine aminotransferase increased [None]
  - Chromaturia [None]
  - Protein urine present [None]

NARRATIVE: CASE EVENT DATE: 20240327
